FAERS Safety Report 7955600-9 (Version None)
Quarter: 2011Q4

REPORT INFORMATION
  Report Type: 
  Country: None (occurrence: None)
  Receive Date: 20111202
  Receipt Date: 20111125
  Transmission Date: 20120403
  Serious: Yes (Hospitalization, Other)
  Sender: FDA-Public Use
  Company Number: BR-ASTRAZENECA-2010SE07091

PATIENT
  Age: 32 Year
  Sex: Male
  Weight: 76 kg

DRUGS (4)
  1. SEROQUEL XR [Suspect]
     Route: 048
     Dates: start: 20091001
  2. ATENOLOL [Suspect]
     Indication: ARRHYTHMIA
     Route: 048
     Dates: start: 20091001
  3. SEROQUEL XR [Suspect]
     Indication: PSYCHOTIC DISORDER
     Route: 048
     Dates: start: 20090401, end: 20091001
  4. SOMALGIN [Concomitant]
     Route: 048
     Dates: start: 20091001

REACTIONS (7)
  - WEIGHT DECREASED [None]
  - BLOOD CHOLESTEROL INCREASED [None]
  - MALAISE [None]
  - SOMNOLENCE [None]
  - CHEST PAIN [None]
  - ACUTE MYOCARDIAL INFARCTION [None]
  - WEIGHT INCREASED [None]
